FAERS Safety Report 15829134 (Version 1)
Quarter: 2019Q1

REPORT INFORMATION
  Report Type: Spontaneous
  Country: US (occurrence: US)
  Receive Date: 20190115
  Receipt Date: 20190115
  Transmission Date: 20190417
  Serious: No
  Sender: FDA-Public Use
  Company Number: US-PERRIGO-18US011903

PATIENT
  Age: 80 Year
  Sex: Male

DRUGS (2)
  1. CICLOPIROX OLAMINE. [Suspect]
     Active Substance: CICLOPIROX OLAMINE
     Indication: HERPES VIRUS INFECTION
     Dosage: UNKNOWN, UNKNOWN
     Route: 061
  2. CICLOPIROX OLAMINE. [Suspect]
     Active Substance: CICLOPIROX OLAMINE
     Indication: ORAL HERPES
     Dosage: UNKNOWN, QHS
     Route: 061
     Dates: start: 201810

REACTIONS (3)
  - Wrong technique in product usage process [Unknown]
  - Therapeutic response unexpected [Unknown]
  - Off label use [Unknown]

NARRATIVE: CASE EVENT DATE: 201810
